FAERS Safety Report 10057725 (Version 1)
Quarter: 2014Q2

REPORT INFORMATION
  Report Type: Spontaneous
  Country: US (occurrence: US)
  Receive Date: 20140404
  Receipt Date: 20140404
  Transmission Date: 20141212
  Serious: No
  Sender: FDA-Public Use
  Company Number: US-BIOGENIDEC-2014BI026495

PATIENT
  Age: 51 Year
  Sex: Female

DRUGS (5)
  1. TECFIDERA [Suspect]
     Indication: MULTIPLE SCLEROSIS
     Route: 048
     Dates: start: 20140316, end: 20140323
  2. TECFIDERA [Suspect]
     Indication: MULTIPLE SCLEROSIS
  3. TECFIDERA [Suspect]
     Indication: MULTIPLE SCLEROSIS
  4. ASPIRIN [Concomitant]
     Indication: FLUSHING
  5. ASPIRIN [Concomitant]
     Indication: PREMEDICATION

REACTIONS (5)
  - Prescribed underdose [Recovered/Resolved]
  - Hot flush [Recovered/Resolved]
  - Skin burning sensation [Recovered/Resolved]
  - Generalised erythema [Recovered/Resolved]
  - Pruritus [Not Recovered/Not Resolved]
